FAERS Safety Report 24121155 (Version 1)
Quarter: 2024Q3

REPORT INFORMATION
  Report Type: Spontaneous
  Country: US (occurrence: US)
  Receive Date: 20240722
  Receipt Date: 20240722
  Transmission Date: 20241017
  Serious: Yes (Other)
  Sender: DR REDDYS
  Company Number: US-DRL-USA-LIT/USA/24/0010521

PATIENT
  Age: 26 Year
  Sex: Male

DRUGS (7)
  1. PROPOFOL [Suspect]
     Active Substance: PROPOFOL
     Indication: Sedative therapy
  2. PROPOFOL [Suspect]
     Active Substance: PROPOFOL
     Indication: New onset refractory status epilepticus
  3. LEVETIRACETAM [Suspect]
     Active Substance: LEVETIRACETAM
     Indication: New onset refractory status epilepticus
  4. MIDAZOLAM [Concomitant]
     Active Substance: MIDAZOLAM
     Indication: New onset refractory status epilepticus
  5. FOSPHENYTOIN [Concomitant]
     Active Substance: FOSPHENYTOIN
     Indication: New onset refractory status epilepticus
  6. PHENOBARBITAL [Concomitant]
     Active Substance: PHENOBARBITAL
     Indication: New onset refractory status epilepticus
  7. LORAZEPAM [Concomitant]
     Active Substance: LORAZEPAM
     Indication: New onset refractory status epilepticus

REACTIONS (2)
  - Drug ineffective [Unknown]
  - Product use in unapproved indication [Unknown]
